FAERS Safety Report 22029779 (Version 4)
Quarter: 2023Q2

REPORT INFORMATION
  Report Type: Spontaneous
  Country: US (occurrence: None)
  Receive Date: 20230223
  Receipt Date: 20230418
  Transmission Date: 20230722
  Serious: No
  Sender: FDA-Public Use
  Company Number: 2023A040014

PATIENT
  Age: 60 Year
  Sex: Female

DRUGS (2)
  1. BREZTRI [Suspect]
     Active Substance: BUDESONIDE\FORMOTEROL\GLYCOPYRROLATE
     Indication: Asthma
     Dosage: 160/9/4.8 MCG, TWO INHALATIONS, TWICE DAILY
     Route: 055
     Dates: start: 2022
  2. BREZTRI [Suspect]
     Active Substance: BUDESONIDE\FORMOTEROL\GLYCOPYRROLATE
     Indication: Asthma
     Dosage: 160/9/4.8 2 PUFFS BID
     Route: 055
     Dates: start: 20220705, end: 20230225

REACTIONS (9)
  - Asthma [Unknown]
  - Dyspnoea [Unknown]
  - Chest discomfort [Unknown]
  - Drug ineffective [Unknown]
  - Drug dose omission by device [Unknown]
  - Wrong technique in device usage process [Unknown]
  - Off label use [Not Recovered/Not Resolved]
  - Incorrect dose administered by device [Unknown]
  - Device malfunction [Unknown]

NARRATIVE: CASE EVENT DATE: 20220101
